FAERS Safety Report 12956839 (Version 1)
Quarter: 2016Q4

REPORT INFORMATION
  Report Type: Spontaneous
  Country: PE (occurrence: PE)
  Receive Date: 20161118
  Receipt Date: 20161118
  Transmission Date: 20170207
  Serious: Yes (Death)
  Sender: FDA-Public Use
  Company Number: PE-B.I. PHARMACEUTICALS,INC./RIDGEFIELD-2016-BI-078078

PATIENT
  Age: 60 Year
  Sex: Female

DRUGS (5)
  1. ETHAMBUTOL [Concomitant]
     Active Substance: ETHAMBUTOL HYDROCHLORIDE
     Indication: PULMONARY TUBERCULOSIS
     Route: 065
  2. RIFAMPICIN [Concomitant]
     Active Substance: RIFAMPIN
     Indication: PULMONARY TUBERCULOSIS
     Route: 065
  3. PIRAZINAMIDE [Concomitant]
     Indication: PULMONARY TUBERCULOSIS
     Route: 065
  4. GILOTRIF [Suspect]
     Active Substance: AFATINIB
     Indication: NON-SMALL CELL LUNG CANCER
     Route: 048
     Dates: start: 201503, end: 201606
  5. ISONIACIDE [Concomitant]
     Indication: PULMONARY TUBERCULOSIS
     Route: 065

REACTIONS (1)
  - Hepatitis toxic [Fatal]

NARRATIVE: CASE EVENT DATE: 201506
